FAERS Safety Report 12749819 (Version 1)
Quarter: 2016Q3

REPORT INFORMATION
  Report Type: Spontaneous
  Country: US (occurrence: US)
  Receive Date: 20160915
  Receipt Date: 20160915
  Transmission Date: 20161109
  Serious: Yes (Hospitalization, Other)
  Sender: FDA-Public Use
  Company Number: None

PATIENT
  Age: 61 Year
  Sex: Female
  Weight: 73.9 kg

DRUGS (10)
  1. ISONIAZID. [Concomitant]
     Active Substance: ISONIAZID
  2. HCTZ [Concomitant]
     Active Substance: HYDROCHLOROTHIAZIDE
  3. GLIMEPIRIDE. [Concomitant]
     Active Substance: GLIMEPIRIDE
  4. TELMISARTAN. [Concomitant]
     Active Substance: TELMISARTAN
  5. JANUMET [Suspect]
     Active Substance: METFORMIN HYDROCHLORIDE\SITAGLIPTIN PHOSPHATE
     Indication: TYPE 2 DIABETES MELLITUS
     Route: 048
     Dates: start: 20160304, end: 20160911
  6. AMLODIPINE [Concomitant]
     Active Substance: AMLODIPINE BESYLATE
  7. ATORVASTATIN [Concomitant]
     Active Substance: ATORVASTATIN
  8. CLONIDINE. [Concomitant]
     Active Substance: CLONIDINE
  9. PIOGLITAZONE. [Concomitant]
     Active Substance: PIOGLITAZONE
  10. EMPAGLIFOZIN [Concomitant]

REACTIONS (3)
  - Renal failure [None]
  - Lactic acidosis [None]
  - Pancreatitis [None]

NARRATIVE: CASE EVENT DATE: 20160911
